FAERS Safety Report 5023343-X (Version None)
Quarter: 2006Q2

REPORT INFORMATION
  Report Type: 
  Country: None (occurrence: None)
  Receive Date: 20060530
  Receipt Date: 20060517
  Transmission Date: 20061013
  Serious: Yes (Hospitalization, Other)
  Sender: FDA-Public Use
  Company Number: 2006BH004879

PATIENT
  Age: 83 Year
  Sex: Male
  Weight: 50 kg

DRUGS (22)
  1. BUMINATE 25% [Suspect]
     Indication: HYPOALBUMINAEMIA
     Dosage: 50 ML; EVERY DAY; IVDRI
     Route: 041
     Dates: start: 20060303, end: 20060305
  2. BUMINATE 25% [Suspect]
     Indication: OEDEMA
     Dosage: 50 ML; EVERY DAY; IVDRI
     Route: 041
     Dates: start: 20060303, end: 20060305
  3. BUMINATE 25% [Suspect]
     Indication: POLYURIA
     Dosage: 50 ML; EVERY DAY; IVDRI
     Route: 041
     Dates: start: 20060303, end: 20060305
  4. LASIX [Concomitant]
  5. LACTEC [Concomitant]
  6. DOPAMINE [Concomitant]
  7. CYANOCOBALAMIN [Concomitant]
  8. PHENOBAL [Concomitant]
  9. ALLOPURINOL [Concomitant]
  10. KODESORUVAN [Concomitant]
  11. FRANDOLTAPE-S [Concomitant]
  12. TSUMURA SEIHAITOU (HERBAL MEDICINE) [Concomitant]
  13. GASTROM [Concomitant]
  14. CALBLOCK [Concomitant]
  15. OLMETEC [Concomitant]
  16. VEEN-D [Concomitant]
  17. SOLDEM 3A [Concomitant]
  18. LACTEC D [Concomitant]
  19. ................ [Concomitant]
  20. INOVAN [Concomitant]
  21. DIGOSIN [Concomitant]
  22. TIENAM [Concomitant]

REACTIONS (9)
  - ANURIA [None]
  - CARDIAC FAILURE [None]
  - CARDIAC HYPERTROPHY [None]
  - DRUG INEFFECTIVE [None]
  - GENERALISED OEDEMA [None]
  - OEDEMA [None]
  - OXYGEN SATURATION DECREASED [None]
  - PNEUMONIA [None]
  - PULMONARY OEDEMA [None]
